FAERS Safety Report 7599271-2 (Version None)
Quarter: 2011Q3

REPORT INFORMATION
  Report Type: 
  Country: None (occurrence: None)
  Receive Date: 20110711
  Receipt Date: 20090412
  Transmission Date: 20111222
  Serious: Yes (Death, Other)
  Sender: FDA-Public Use
  Company Number: AU-BAYER-200917938NA

PATIENT
  Age: 68 Year
  Sex: Female
  Weight: 66 kg

DRUGS (18)
  1. LORTAB [Concomitant]
     Dosage: 7.5/500 MG
     Route: 048
  2. HEPARIN [Concomitant]
     Dosage: 25,000 UNITS
  3. MAGNESIUM SULFATE [Concomitant]
     Dosage: 2 GRAMS
     Route: 042
  4. SODIUM BICARBONATE [Concomitant]
     Dosage: 20MEQU
  5. TRASYLOL [Suspect]
     Dosage: 200 ML PRIME
     Route: 042
     Dates: start: 20040907, end: 20040907
  6. COUMADIN [Concomitant]
     Dosage: 5 MG AS DIRECTED
     Route: 048
  7. DOBUTAMINE HCL [Concomitant]
     Route: 042
  8. VANCOMYCIN [Concomitant]
  9. AMIODARONE HCL [Concomitant]
  10. LASIX [Concomitant]
  11. XANAX [Concomitant]
     Dosage: AS NEEDED
     Route: 048
  12. ALBUMIN (HUMAN) [Concomitant]
     Dosage: 50
  13. DIOVAN [Concomitant]
     Dosage: DAILY
     Route: 048
  14. HEPARIN [Concomitant]
     Dosage: 20,000 UNITS
     Route: 042
  15. RED BLOOD CELLS [Concomitant]
     Dosage: 2 U, ONCE
     Route: 042
     Dates: start: 20040907
  16. TRASYLOL [Suspect]
     Indication: PRODUCT USED FOR UNKNOWN INDICATION
     Dosage: 1 ML INITIAL TEST DOSE
     Route: 042
     Dates: start: 20040907, end: 20040907
  17. LIPITOR [Concomitant]
     Dosage: 20 MG, QD
     Route: 048
  18. PLAVIX [Concomitant]
     Dosage: 75 MG, QD
     Route: 048

REACTIONS (12)
  - RENAL INJURY [None]
  - EMOTIONAL DISTRESS [None]
  - STRESS [None]
  - UNEVALUABLE EVENT [None]
  - RENAL IMPAIRMENT [None]
  - INJURY [None]
  - ANXIETY [None]
  - MULTI-ORGAN FAILURE [None]
  - RENAL FAILURE [None]
  - PAIN [None]
  - DEATH [None]
  - FEAR [None]
